FAERS Safety Report 19836106 (Version 3)
Quarter: 2021Q3

REPORT INFORMATION
  Report Type: Report from Study
  Country: NL (occurrence: NL)
  Receive Date: 20210915
  Receipt Date: 20210922
  Transmission Date: 20211014
  Serious: Yes (Hospitalization)
  Sender: FDA-Public Use
  Company Number: NL-IPSEN BIOPHARMACEUTICALS, INC.-2021-22127

PATIENT
  Age: 63 Year
  Sex: Female

DRUGS (1)
  1. SOMATULINE AUTOSOLUTION [Suspect]
     Active Substance: LANREOTIDE ACETATE
     Indication: NEUROENDOCRINE TUMOUR
     Dosage: 1 X PER 4 WEEK
     Route: 058
     Dates: start: 20210817

REACTIONS (3)
  - Pyrexia [Unknown]
  - Haemorrhoidal haemorrhage [Recovered/Resolved]
  - Diarrhoea [Recovered/Resolved]

NARRATIVE: CASE EVENT DATE: 2021
